FAERS Safety Report 9926017 (Version 2)
Quarter: 2014Q1

REPORT INFORMATION
  Report Type: Spontaneous
  Country: GR (occurrence: GR)
  Receive Date: 20140226
  Receipt Date: 20140226
  Transmission Date: 20141002
  Serious: Yes (Other)
  Sender: FDA-Public Use
  Company Number: GR-AMGEN-GRCSP2014005371

PATIENT
  Age: 67 Year
  Sex: Male
  Weight: 56 kg

DRUGS (3)
  1. PROLIA [Suspect]
     Indication: OSTEITIS DEFORMANS
     Dosage: 30 MG, Q6MO
     Route: 058
  2. PROLIA [Suspect]
     Indication: PROPHYLAXIS
  3. CALCIUM VITAMIN D [Concomitant]
     Indication: SUPPLEMENTATION THERAPY

REACTIONS (2)
  - Cataract [Recovered/Resolved]
  - Colon cancer [Unknown]
